FAERS Safety Report 5811647-X (Version None)
Quarter: 2008Q3

REPORT INFORMATION
  Report Type: 
  Country: None (occurrence: None)
  Receive Date: 20080711
  Receipt Date: 20080711
  Transmission Date: 20090109
  Serious: Yes (Hospitalization)
  Sender: FDA-Public Use
  Company Number: None

PATIENT
  Age: 54 Year
  Sex: Male
  Weight: 69 kg

DRUGS (6)
  1. CLOZARIL [Suspect]
     Indication: SCHIZOAFFECTIVE DISORDER
     Dosage: 200MG PO BID
     Route: 048
     Dates: start: 20030101, end: 20080614
  2. ASPIRIN [Concomitant]
  3. BENZTROPINE MESYLATE [Concomitant]
  4. HALOPERIDOL [Concomitant]
  5. LITHIUM [Concomitant]
  6. LORAZEPAM [Concomitant]

REACTIONS (2)
  - NEUTROPHIL COUNT DECREASED [None]
  - WHITE BLOOD CELL COUNT DECREASED [None]
